FAERS Safety Report 10009431 (Version 1)
Quarter: 2014Q1

REPORT INFORMATION
  Report Type: Spontaneous
  Country: US (occurrence: US)
  Receive Date: 20140312
  Receipt Date: 20140312
  Transmission Date: 20141002
  Serious: No
  Sender: FDA-Public Use
  Company Number: US-INCYTE CORPORATION-2012IN001603

PATIENT
  Age: 70 Year
  Sex: Male

DRUGS (6)
  1. JAKAFI [Suspect]
     Indication: MYELOFIBROSIS
     Dosage: 10 MG, BID
     Route: 048
     Dates: start: 201208
  2. LISINOPRIL [Concomitant]
  3. PROPECIA [Concomitant]
  4. METFORMIN [Concomitant]
  5. WELLBUTRIN [Concomitant]
  6. SERTRALINE [Concomitant]

REACTIONS (2)
  - Tinea cruris [Not Recovered/Not Resolved]
  - Alopecia [Not Recovered/Not Resolved]
